FAERS Safety Report 13904626 (Version 1)
Quarter: 2017Q3

REPORT INFORMATION
  Report Type: Spontaneous
  Country: US (occurrence: None)
  Receive Date: 20170819
  Receipt Date: 20170819
  Transmission Date: 20171127
  Serious: Yes (Hospitalization)
  Sender: FDA-Public Use
  Company Number: None

PATIENT
  Age: 81 Year
  Sex: Male

DRUGS (22)
  1. MULTI-VITE [Concomitant]
  2. ENALAPRIL [Concomitant]
     Active Substance: ENALAPRIL
  3. FLOMAX [Concomitant]
     Active Substance: TAMSULOSIN HYDROCHLORIDE
  4. IRON [Concomitant]
     Active Substance: IRON
  5. FAMOTIDINE. [Concomitant]
     Active Substance: FAMOTIDINE
  6. ALBUTEROL. [Concomitant]
     Active Substance: ALBUTEROL
  7. CELEXA [Concomitant]
     Active Substance: CITALOPRAM HYDROBROMIDE
  8. CARB/LEVO [Concomitant]
     Active Substance: CARBIDOPA\LEVODOPA
  9. PROVENTIL [Concomitant]
     Active Substance: ALBUTEROL
  10. PROAIR HFA [Concomitant]
     Active Substance: ALBUTEROL SULFATE
  11. CITALOPRAM [Concomitant]
     Active Substance: CITALOPRAM HYDROBROMIDE
  12. SINEMET [Concomitant]
     Active Substance: CARBIDOPA\LEVODOPA
  13. ATENOLOL. [Concomitant]
     Active Substance: ATENOLOL
  14. TOBRAMYCIN 300MG/5ML [Suspect]
     Active Substance: TOBRAMYCIN
     Indication: BRONCHIECTASIS
     Route: 055
     Dates: start: 20160609
  15. ADVAIR HFA [Concomitant]
     Active Substance: FLUTICASONE PROPIONATE\SALMETEROL XINAFOATE
  16. LITHIUM. [Concomitant]
     Active Substance: LITHIUM
  17. CLOZAPINE. [Concomitant]
     Active Substance: CLOZAPINE
  18. COUMADIN [Concomitant]
     Active Substance: WARFARIN SODIUM
  19. THEOPHYLLINE [Concomitant]
     Active Substance: THEOPHYLLINE ANHYDROUS
  20. SPIRIVA [Concomitant]
     Active Substance: TIOTROPIUM BROMIDE MONOHYDRATE
  21. MULTI-VITAMIN [Concomitant]
     Active Substance: .ALPHA.-TOCOPHEROL ACETATE, DL-\ASCORBIC ACID\CYANOCOBALAMIN\FLUORIDE ION\FOLIC ACID\NIACIN\PYRIDOXINE\RIBOFLAVIN\THIAMINE\VITAMIN A\VITAMIN D
  22. VASOTEC [Concomitant]
     Active Substance: ENALAPRIL MALEATE

REACTIONS (1)
  - Pneumonia [None]

NARRATIVE: CASE EVENT DATE: 20170713
